FAERS Safety Report 10450557 (Version 1)
Quarter: 2014Q3

REPORT INFORMATION
  Report Type: Spontaneous
  Country: US (occurrence: US)
  Receive Date: 20140912
  Receipt Date: 20140912
  Transmission Date: 20150326
  Serious: No
  Sender: FDA-Public Use
  Company Number: US-PFIZER INC-2014252127

PATIENT
  Age: 47 Year
  Sex: Female
  Weight: 56.69 kg

DRUGS (2)
  1. VENLAFAXINE HCL [Suspect]
     Active Substance: VENLAFAXINE HYDROCHLORIDE
     Indication: ANXIETY
     Dosage: UNK
     Dates: end: 2012
  2. PAROXETINE [Concomitant]
     Active Substance: PAROXETINE\PAROXETINE HYDROCHLORIDE
     Dosage: UNK

REACTIONS (3)
  - Migraine [Unknown]
  - Anxiety [Unknown]
  - Drug intolerance [Unknown]

NARRATIVE: CASE EVENT DATE: 2012
